FAERS Safety Report 6106523-1 (Version None)
Quarter: 2009Q1

REPORT INFORMATION
  Report Type: 
  Country: None (occurrence: None)
  Receive Date: 20090304
  Receipt Date: 20090211
  Transmission Date: 20090719
  Serious: Yes (Other)
  Sender: FDA-Public Use
  Company Number: 2009-00004

PATIENT
  Sex: Female

DRUGS (1)
  1. CLEAN + CLEAR BLACKHEAD ERASER KIT [Suspect]
     Dosage: TOPICAL
     Route: 061

REACTIONS (4)
  - ACCIDENTAL EXPOSURE [None]
  - CHEMICAL EYE INJURY [None]
  - EXCORIATION [None]
  - EYE BURNS [None]
